FAERS Safety Report 7930341-2 (Version None)
Quarter: 2011Q4

REPORT INFORMATION
  Report Type: 
  Country: None (occurrence: None)
  Receive Date: 20111121
  Receipt Date: 20111107
  Transmission Date: 20120403
  Serious: Yes (Death)
  Sender: FDA-Public Use
  Company Number: US-ROCHE-1011657

PATIENT
  Sex: Female

DRUGS (3)
  1. HERCEPTIN [Suspect]
     Dosage: MAINTENANCE DOSE, FORM: NOT REPORTED, OVER 30 MIN ON DAY 1 OF EVERY WEEK
     Route: 042
  2. GEFITINIB [Suspect]
     Indication: PRODUCT USED FOR UNKNOWN INDICATION
     Dosage: FORM: NOT REPORTED, LAST DOSE PRIOR TO SAE: 07 JULY 2003
     Route: 048
  3. HERCEPTIN [Suspect]
     Indication: PRODUCT USED FOR UNKNOWN INDICATION
     Dosage: LOADING DOSE, OVER 90 MIN ON DAY 1 OF WEEK 1, FORM: NOT REPORTED
     Route: 042
     Dates: start: 20030416

REACTIONS (1)
  - WOUND DEHISCENCE [None]
